FAERS Safety Report 20873714 (Version 1)
Quarter: 2022Q2

REPORT INFORMATION
  Report Type: Other
  Country: NL (occurrence: NL)
  Receive Date: 20220525
  Receipt Date: 20220525
  Transmission Date: 20220720
  Serious: Yes (Death, Other)
  Sender: FDA-Public Use
  Company Number: NL-Genus_Lifesciences-USA-POI0580202200159

PATIENT
  Age: 77 Year
  Sex: Male

DRUGS (3)
  1. ACETAMINOPHEN\HYDROCODONE BITARTRATE [Suspect]
     Active Substance: ACETAMINOPHEN\HYDROCODONE BITARTRATE
     Indication: Device related infection
     Dosage: UNSPECIFIED HIGH DOSE
     Route: 042
     Dates: start: 2022, end: 2022
  2. FLUCLOXACILLIN [Suspect]
     Active Substance: FLUCLOXACILLIN
     Indication: Device related infection
     Dosage: UNSPECIFIED HIGH DOSE
     Route: 042
     Dates: start: 2022, end: 2022
  3. RIFAMPIN [Suspect]
     Active Substance: RIFAMPIN
     Indication: Device related infection
     Dosage: UNSPECIFIED HIGH DOSE
     Route: 042
     Dates: start: 2022, end: 2022

REACTIONS (1)
  - Metabolic acidosis [Fatal]

NARRATIVE: CASE EVENT DATE: 20220101
